FAERS Safety Report 8166393-7 (Version None)
Quarter: 2012Q1

REPORT INFORMATION
  Report Type: 
  Country: None (occurrence: None)
  Receive Date: 20120227
  Receipt Date: 20110708
  Transmission Date: 20120608
  Serious: No
  Sender: FDA-Public Use
  Company Number: US-MYLANLABS-2011S1014279

PATIENT
  Age: 15 Year
  Sex: Female
  Weight: 53.07 kg

DRUGS (1)
  1. AMNESTEEM [Suspect]
     Indication: ACNE
     Route: 048
     Dates: start: 20110201, end: 20110331

REACTIONS (2)
  - MENSTRUATION DELAYED [None]
  - VISION BLURRED [None]
